FAERS Safety Report 12902357 (Version 1)
Quarter: 2016Q4

REPORT INFORMATION
  Report Type: Spontaneous
  Country: HR (occurrence: HR)
  Receive Date: 20161102
  Receipt Date: 20161102
  Transmission Date: 20170207
  Serious: Yes (Hospitalization)
  Sender: FDA-Public Use
  Company Number: HR-ACCORD-045257

PATIENT
  Age: 63 Year
  Sex: Male

DRUGS (2)
  1. BUDESONIDE/FORMOTEROL [Suspect]
     Active Substance: BUDESONIDE\FORMOTEROL
     Indication: BRONCHITIS CHRONIC
     Dosage: 160/4.5 MICROG
  2. HYDROCHLOROTHIAZIDE. [Suspect]
     Active Substance: HYDROCHLOROTHIAZIDE
     Indication: HYPERTENSION

REACTIONS (5)
  - Coronary artery stenosis [None]
  - Hypersensitivity [Unknown]
  - Eosinophilic myocarditis [Unknown]
  - Pneumonia [Unknown]
  - Pericardial effusion [None]
